FAERS Safety Report 13932502 (Version 1)
Quarter: 2017Q3

REPORT INFORMATION
  Report Type: Report from Study
  Country: US (occurrence: US)
  Receive Date: 20170904
  Receipt Date: 20170904
  Transmission Date: 20171127
  Serious: Yes (Hospitalization)
  Sender: FDA-Public Use
  Company Number: US-ROCHE-1627413

PATIENT
  Age: 81 Year
  Sex: Male
  Weight: 72.64 kg

DRUGS (18)
  1. ESBRIET [Suspect]
     Active Substance: PIRFENIDONE
     Dosage: 3 PILLS TID. 267 MG PILLS
     Route: 048
     Dates: start: 201504, end: 201509
  2. ESBRIET [Suspect]
     Active Substance: PIRFENIDONE
     Route: 048
     Dates: end: 20170325
  3. ESBRIET [Suspect]
     Active Substance: PIRFENIDONE
     Dosage: 3 CAPSULES THREE TIMES A DAY; ONGOING YES
     Route: 048
     Dates: start: 2017
  4. BABY ASPIRIN [Concomitant]
     Active Substance: ASPIRIN
     Indication: PROPHYLAXIS
     Dosage: AT NIGHT
     Route: 048
  5. PREDNISONE. [Concomitant]
     Active Substance: PREDNISONE
     Indication: IDIOPATHIC PULMONARY FIBROSIS
     Route: 048
     Dates: start: 201702
  6. SIMVASTATIN. [Concomitant]
     Active Substance: SIMVASTATIN
     Route: 048
  7. SILVADENE [Concomitant]
     Active Substance: SILVER SULFADIAZINE
     Indication: IDIOPATHIC PULMONARY FIBROSIS
     Route: 048
     Dates: start: 201702
  8. ESBRIET [Suspect]
     Active Substance: PIRFENIDONE
     Indication: IDIOPATHIC PULMONARY FIBROSIS
     Dosage: 3 PILLS
     Route: 048
     Dates: start: 20141226, end: 20150825
  9. PROAIR HFA [Concomitant]
     Active Substance: ALBUTEROL SULFATE
     Dosage: ONCE IN 4-6 HOURS 2 PUFFS AS NEEDED
     Route: 065
  10. OXYGEN. [Concomitant]
     Active Substance: OXYGEN
     Dosage: 24/7
     Route: 065
  11. COMBIVENT [Concomitant]
     Active Substance: ALBUTEROL SULFATE\IPRATROPIUM BROMIDE
     Dosage: 103/18 MCG AS NEEDED
     Route: 055
  12. ESBRIET [Suspect]
     Active Substance: PIRFENIDONE
     Route: 048
     Dates: start: 20170324, end: 20170401
  13. SPIRIVA [Concomitant]
     Active Substance: TIOTROPIUM BROMIDE MONOHYDRATE
     Indication: IDIOPATHIC PULMONARY FIBROSIS
     Route: 065
     Dates: start: 2014
  14. TRIAMTERENE AND HYDROCHLOROTHIAZIDE [Concomitant]
     Active Substance: HYDROCHLOROTHIAZIDE\TRIAMTERENE
     Dosage: 25/37.5 MG
     Route: 048
  15. ALBUTEROL. [Concomitant]
     Active Substance: ALBUTEROL
     Dosage: 2.5MG/3ML, 3-4 TIMES
     Route: 055
     Dates: start: 2015
  16. ESBRIET [Suspect]
     Active Substance: PIRFENIDONE
     Route: 048
     Dates: end: 201512
  17. NINTEDANIB [Suspect]
     Active Substance: NINTEDANIB
     Indication: PRODUCT USED FOR UNKNOWN INDICATION
     Dosage: ONGOING :NO
     Route: 065
  18. ESBRIET [Suspect]
     Active Substance: PIRFENIDONE
     Indication: ASBESTOSIS
     Dosage: 1 CAPSULE THREE TIMES A DAY
     Route: 048

REACTIONS (24)
  - Dyspnoea [Recovered/Resolved]
  - Erythema [Unknown]
  - Diarrhoea [Recovered/Resolved]
  - Dry skin [Not Recovered/Not Resolved]
  - Weight decreased [Recovered/Resolved with Sequelae]
  - Pruritus [Not Recovered/Not Resolved]
  - Rash [Not Recovered/Not Resolved]
  - Skin exfoliation [Recovered/Resolved with Sequelae]
  - Fall [Unknown]
  - Lung disorder [Not Recovered/Not Resolved]
  - General physical health deterioration [Not Recovered/Not Resolved]
  - Femur fracture [Recovering/Resolving]
  - Swelling [Not Recovered/Not Resolved]
  - Haemorrhagic diathesis [Unknown]
  - Burns third degree [Unknown]
  - Contusion [Unknown]
  - Skin fissures [Recovered/Resolved]
  - Skin exfoliation [Unknown]
  - Urticaria [Unknown]
  - Blister [Not Recovered/Not Resolved]
  - Dyspnoea [Recovered/Resolved]
  - Photosensitivity reaction [Recovered/Resolved]
  - Gastrointestinal disorder [Unknown]
  - Hip fracture [Unknown]

NARRATIVE: CASE EVENT DATE: 201612
